FAERS Safety Report 16809185 (Version 1)
Quarter: 2019Q3

REPORT INFORMATION
  Report Type: Report from Study
  Country: US (occurrence: US)
  Receive Date: 20190916
  Receipt Date: 20190916
  Transmission Date: 20191005
  Serious: No
  Sender: FDA-Public Use
  Company Number: PHEH2019US037851

PATIENT
  Sex: Female

DRUGS (1)
  1. ENTRESTO [Suspect]
     Active Substance: SACUBITRIL\VALSARTAN
     Indication: CARDIAC FAILURE
     Dosage: 1 DF, (49 MG SACUBITRIL, 51 MG VALSARTAN), BID
     Route: 065

REACTIONS (3)
  - Asthenia [Unknown]
  - Feeling abnormal [Unknown]
  - Fatigue [Unknown]
